FAERS Safety Report 22001771 (Version 3)
Quarter: 2023Q1

REPORT INFORMATION
  Report Type: Report from Study
  Country: ES (occurrence: ES)
  Receive Date: 20230216
  Receipt Date: 20230317
  Transmission Date: 20230417
  Serious: Yes (Other)
  Sender: FDA-Public Use
  Company Number: ES-TAKEDA-2022TUS093179

PATIENT
  Age: 44 Year
  Sex: Female

DRUGS (9)
  1. TEDUGLUTIDE [Suspect]
     Active Substance: TEDUGLUTIDE
     Indication: Short-bowel syndrome
     Dosage: 2.71 MILLIGRAM, QD
     Route: 042
     Dates: start: 20180507, end: 20190918
  2. TEDUGLUTIDE [Suspect]
     Active Substance: TEDUGLUTIDE
     Indication: Short-bowel syndrome
     Dosage: 2.71 MILLIGRAM, QD
     Route: 042
     Dates: start: 20180507, end: 20190918
  3. TEDUGLUTIDE [Suspect]
     Active Substance: TEDUGLUTIDE
     Indication: Short-bowel syndrome
     Dosage: 2.71 MILLIGRAM, QD
     Route: 042
     Dates: start: 20180507, end: 20190918
  4. TEDUGLUTIDE [Suspect]
     Active Substance: TEDUGLUTIDE
     Indication: Short-bowel syndrome
     Dosage: 2.71 MILLIGRAM, QD
     Route: 042
     Dates: start: 20180507, end: 20190918
  5. SPIRONOLACTONE [Concomitant]
     Active Substance: SPIRONOLACTONE
     Indication: Ascites
     Dosage: 25 MILLIGRAM, BID
     Route: 048
     Dates: start: 20210513
  6. FUROSEMIDE [Concomitant]
     Active Substance: FUROSEMIDE
     Indication: Ascites
     Dosage: 40 MILLIGRAM
     Route: 048
     Dates: start: 20210513
  7. AUXINA A E [Concomitant]
     Indication: Short-bowel syndrome
     Dosage: 5000 INTERNATIONAL UNIT, BID
     Route: 048
     Dates: start: 20200219
  8. ALMAGATE [Concomitant]
     Active Substance: ALMAGATE
     Indication: Short-bowel syndrome
     Dosage: UNK
     Route: 048
     Dates: start: 20200219
  9. HIDROFEROL CHOQUE [Concomitant]
     Indication: Short-bowel syndrome
     Dosage: 1 MILLIGRAM, 1/WEEK
     Route: 048
     Dates: start: 20221219

REACTIONS (2)
  - Anal abscess [Not Recovered/Not Resolved]
  - Fistula [Not Recovered/Not Resolved]

NARRATIVE: CASE EVENT DATE: 20221124
